FAERS Safety Report 6750612-5 (Version None)
Quarter: 2010Q2

REPORT INFORMATION
  Report Type: 
  Country: None (occurrence: None)
  Receive Date: 20100527
  Receipt Date: 20100517
  Transmission Date: 20101027
  Serious: Yes (Hospitalization)
  Sender: FDA-Public Use
  Company Number: 2010SP027436

PATIENT
  Sex: Female

DRUGS (2)
  1. KEIMAX           (CEFTIBUTEN /0116620/) [Suspect]
     Indication: DRUG USE FOR UNKNOWN INDICATION
  2. MARCUMAR [Concomitant]

REACTIONS (2)
  - SKIN DISCOLOURATION [None]
  - THERAPY REGIMEN CHANGED [None]
